FAERS Safety Report 21745265 (Version 3)
Quarter: 2022Q4

REPORT INFORMATION
  Report Type: Spontaneous
  Country: US (occurrence: None)
  Receive Date: 20221219
  Receipt Date: 20221222
  Transmission Date: 20230113
  Serious: Yes (Life-Threatening, Hospitalization, Other)
  Sender: FDA-Public Use
  Company Number: US-ROCHE-3242941

PATIENT
  Sex: Female

DRUGS (1)
  1. RITUXAN [Suspect]
     Active Substance: RITUXIMAB
     Indication: Vasculitis gastrointestinal
     Route: 065
     Dates: start: 20221207

REACTIONS (11)
  - Skin exfoliation [Unknown]
  - Angioedema [Unknown]
  - Hypertension [Unknown]
  - Malaise [Unknown]
  - Dysphagia [Unknown]
  - Asthenia [Unknown]
  - Facial paralysis [Unknown]
  - Glossitis [Unknown]
  - Cardio-respiratory arrest [Unknown]
  - Dyspepsia [Unknown]
  - Off label use [Unknown]

NARRATIVE: CASE EVENT DATE: 20221209
